FAERS Safety Report 19929565 (Version 3)
Quarter: 2021Q4

REPORT INFORMATION
  Report Type: Report from Study
  Country: US (occurrence: US)
  Receive Date: 20211007
  Receipt Date: 20211217
  Transmission Date: 20220303
  Serious: No
  Sender: FDA-Public Use
  Company Number: NVSC2021US228669

PATIENT
  Sex: Female

DRUGS (1)
  1. ENTRESTO [Suspect]
     Active Substance: SACUBITRIL\VALSARTAN
     Indication: Product used for unknown indication
     Dosage: 50 MG, BID (24/26)
     Route: 048
     Dates: start: 202108

REACTIONS (3)
  - Weight decreased [Recovering/Resolving]
  - Blood sodium decreased [Unknown]
  - Ejection fraction normal [Recovering/Resolving]
